FAERS Safety Report 21589612 (Version 1)
Quarter: 2022Q4

REPORT INFORMATION
  Report Type: Spontaneous
  Country: US (occurrence: US)
  Receive Date: 20221114
  Receipt Date: 20221114
  Transmission Date: 20230113
  Serious: No
  Sender: FDA-Public Use
  Company Number: US-PFIZER INC-PV202200101730

PATIENT

DRUGS (2)
  1. CIBINQO [Suspect]
     Active Substance: ABROCITINIB
     Indication: Dermatitis atopic
     Dosage: UNK
  2. CIBINQO [Suspect]
     Active Substance: ABROCITINIB
     Indication: Systemic lupus erythematosus

REACTIONS (1)
  - Therapeutic response unexpected [Unknown]
